FAERS Safety Report 11142061 (Version 1)
Quarter: 2015Q2

REPORT INFORMATION
  Report Type: Spontaneous
  Country: US (occurrence: US)
  Receive Date: 20150527
  Receipt Date: 20150527
  Transmission Date: 20150821
  Serious: No
  Sender: FDA-Public Use
  Company Number: US-MALLINCKRODT-QSC-2014-0556

PATIENT
  Sex: Female

DRUGS (1)
  1. H.P. ACTHAR [Suspect]
     Active Substance: CORTICOTROPIN
     Indication: SYSTEMIC LUPUS ERYTHEMATOSUS
     Dosage: 80 UNITS
     Route: 030
     Dates: start: 201406, end: 201406

REACTIONS (4)
  - Pain [Unknown]
  - Influenza like illness [Unknown]
  - Pyrexia [Unknown]
  - Lethargy [Unknown]

NARRATIVE: CASE EVENT DATE: 2014
